FAERS Safety Report 25623067 (Version 1)
Quarter: 2025Q3

REPORT INFORMATION
  Report Type: Spontaneous
  Country: US (occurrence: None)
  Receive Date: 20250730
  Receipt Date: 20250730
  Transmission Date: 20251020
  Serious: Yes (Life-Threatening)
  Sender: FDA-CTU
  Company Number: None

PATIENT
  Age: 57 Year
  Sex: Male
  Weight: 66.15 kg

DRUGS (3)
  1. DEVICE [Suspect]
     Active Substance: DEVICE
     Indication: Anaemia
  2. DEVICE [Suspect]
     Active Substance: DEVICE
     Indication: Platelet count decreased
  3. DEVICE [Suspect]
     Active Substance: DEVICE
     Indication: Chest pain

REACTIONS (4)
  - Lung infiltration [None]
  - Throat tightness [None]
  - Blood pressure increased [None]
  - Transfusion-related acute lung injury [None]

NARRATIVE: CASE EVENT DATE: 20250728
